FAERS Safety Report 4518007-2 (Version None)
Quarter: 2004Q4

REPORT INFORMATION
  Report Type: 
  Country: None (occurrence: None)
  Receive Date: 20041130
  Receipt Date: 20041112
  Transmission Date: 20050328
  Serious: Yes (Life-Threatening, Hospitalization, Disabling)
  Sender: FDA-Public Use
  Company Number: US_0404102096

PATIENT
  Sex: Male
  Weight: 120 kg

DRUGS (17)
  1. ZYPREXA [Suspect]
     Indication: OBSESSIVE-COMPULSIVE DISORDER
     Dosage: 20 MG/1 AT BEDTIME
     Dates: start: 19990617, end: 20010419
  2. LUVOX 9FLUVOXAMINE MALEATE) [Concomitant]
  3. ZOLOFT [Concomitant]
  4. PAXIL [Concomitant]
  5. XANAX (ALPRAZOLAM DUM) [Concomitant]
  6. BUSPAR [Concomitant]
  7. SEROQUEL [Concomitant]
  8. CELEXA [Concomitant]
  9. ATIVAN [Concomitant]
  10. ZANTAC [Concomitant]
  11. REGLAN [Concomitant]
  12. PRILOSEC (OMEPRAZOLE RTIOPHARM) [Concomitant]
  13. ACETAMINOPHEN [Concomitant]
  14. DARVOCET-N 100 [Concomitant]
  15. [HENERGAN (PROMETHAZINE HYDROCHLORIDE) [Concomitant]
  16. ANCEF [Concomitant]
  17. CODEINE [Concomitant]

REACTIONS (10)
  - BLOOD GLUCOSE INCREASED [None]
  - BRAIN DAMAGE [None]
  - DRUG DEPENDENCE [None]
  - DRUG INTOLERANCE [None]
  - EMOTIONAL DISORDER [None]
  - EXTRAPYRAMIDAL DISORDER [None]
  - GLUCOSE TOLERANCE TEST ABNORMAL [None]
  - NEUROLEPTIC MALIGNANT SYNDROME [None]
  - PANIC DISORDER [None]
  - TARDIVE DYSKINESIA [None]
